FAERS Safety Report 13594673 (Version 3)
Quarter: 2017Q2

REPORT INFORMATION
  Report Type: Spontaneous
  Country: IT (occurrence: IT)
  Receive Date: 20170530
  Receipt Date: 20170615
  Transmission Date: 20170830
  Serious: Yes (Hospitalization)
  Sender: FDA-Public Use
  Company Number: IT-ACCORD-051851

PATIENT
  Age: 75 Year
  Sex: Male

DRUGS (5)
  1. LAROXYL [Interacting]
     Active Substance: AMITRIPTYLINE
     Dosage: STRENGTH: 40 MG/ML
     Route: 048
     Dates: start: 20170425, end: 20170425
  2. RAMIPRIL. [Interacting]
     Active Substance: RAMIPRIL
     Route: 048
     Dates: start: 20170425, end: 20170425
  3. LORAZEPAM. [Suspect]
     Active Substance: LORAZEPAM
     Route: 048
     Dates: start: 20170425, end: 20170425
  4. COUMADIN [Interacting]
     Active Substance: WARFARIN SODIUM
     Dosage: STRENGTH: 5 MG
     Route: 048
     Dates: start: 20170425, end: 20170425
  5. TARGIN [Interacting]
     Active Substance: NALOXONE HYDROCHLORIDE\OXYCODONE HYDROCHLORIDE
     Dosage: 20 MG/10 MG: OXYCODONE / NALOXONE
     Route: 048
     Dates: start: 20170425, end: 20170425

REACTIONS (5)
  - Drug interaction [Unknown]
  - Coma [Recovered/Resolved]
  - Poisoning deliberate [Unknown]
  - Intentional overdose [Unknown]
  - Drug use disorder [Unknown]

NARRATIVE: CASE EVENT DATE: 20170425
